FAERS Safety Report 20704770 (Version 1)
Quarter: 2022Q2

REPORT INFORMATION
  Report Type: Spontaneous
  Country: US (occurrence: US)
  Receive Date: 20220413
  Receipt Date: 20220413
  Transmission Date: 20220721
  Serious: Yes (Hospitalization, Other)
  Sender: FDA-Public Use
  Company Number: US-JNJFOC-20220415567

PATIENT
  Age: 77 Year
  Sex: Female
  Weight: 87.4 kg

DRUGS (1)
  1. OPSUMIT [Suspect]
     Active Substance: MACITENTAN
     Indication: Pulmonary hypertension
     Route: 048

REACTIONS (4)
  - Hallucination [Unknown]
  - Mental status changes [Unknown]
  - Fall [Unknown]
  - Product dose omission issue [Unknown]

NARRATIVE: CASE EVENT DATE: 20220406
